FAERS Safety Report 4930838-3 (Version None)
Quarter: 2006Q1

REPORT INFORMATION
  Report Type: 
  Country: None (occurrence: None)
  Receive Date: 20060227
  Receipt Date: 20030221
  Transmission Date: 20060701
  Serious: Yes (Other)
  Sender: FDA-Public Use
  Company Number: 200610472GDS

PATIENT
  Age: 38 Year
  Sex: Female

DRUGS (12)
  1. CIPRO [Suspect]
     Dosage: 400 MG, BID, INTRAVENOUS
     Route: 042
  2. AMINOPHYLLINE [Concomitant]
  3. BECLOMETHASONE DIPROPIONATE [Concomitant]
  4. FUROSEMIDE [Concomitant]
  5. HEPARIN [Concomitant]
  6. INSULIN LENTE [Concomitant]
  7. METHYLPREDNISOLONE [Concomitant]
  8. METOCLOPRAMIDE [Concomitant]
  9. METOLAZONE [Concomitant]
  10. MORPHINE [Concomitant]
  11. PAXIL [Concomitant]
  12. RANITIDINE [Concomitant]

REACTIONS (3)
  - BLOOD CREATININE INCREASED [None]
  - GRAND MAL CONVULSION [None]
  - HYPONATRAEMIA [None]
